FAERS Safety Report 9281306 (Version 2)
Quarter: 2013Q2

REPORT INFORMATION
  Report Type: Spontaneous
  Country: US (occurrence: US)
  Receive Date: 20130509
  Receipt Date: 20130628
  Transmission Date: 20140414
  Serious: Yes (Other)
  Sender: FDA-Public Use
  Company Number: US-ASTRAZENECA-2013SE30700

PATIENT
  Age: 59 Year
  Sex: Female
  Weight: 55 kg

DRUGS (10)
  1. FASLODEX [Suspect]
     Indication: BREAST CANCER METASTATIC
     Dosage: PREVIOUS EXPOSURE
     Route: 030
     Dates: start: 20120607
  2. FASLODEX [Suspect]
     Indication: BREAST CANCER METASTATIC
     Dosage: PREVIOUS EXPOSURE
     Route: 030
     Dates: start: 20120801
  3. FASLODEX [Suspect]
     Indication: BREAST CANCER METASTATIC
     Dosage: PREVIOUS EXPOSURE
     Route: 030
     Dates: start: 20120829
  4. FASLODEX [Suspect]
     Indication: BREAST CANCER METASTATIC
     Dosage: PREVIOUS EXPOSURE
     Route: 030
     Dates: start: 20120906
  5. FASLODEX [Suspect]
     Indication: BREAST CANCER METASTATIC
     Dosage: PREVIOUS EXPOSURE
     Route: 030
     Dates: start: 20121107
  6. FASLODEX [Suspect]
     Indication: BREAST CANCER METASTATIC
     Dosage: PREVIOUS EXPOSURE
     Route: 030
     Dates: start: 20121212
  7. FASLODEX [Suspect]
     Indication: BREAST CANCER METASTATIC
     Dosage: FIRST DOSE 500 MG EVERY FOUR WEEK
     Route: 030
     Dates: start: 20130412, end: 20130412
  8. FASLODEX [Suspect]
     Indication: BREAST CANCER METASTATIC
     Dosage: SECOND DOSE
     Route: 030
  9. EFFEXOR XR [Concomitant]
     Route: 048
     Dates: start: 20111116
  10. MEDROL DOSE PAK [Concomitant]
     Dates: start: 20120926

REACTIONS (6)
  - Throat tightness [Unknown]
  - Dyspnoea [Recovered/Resolved]
  - Rash [Unknown]
  - Anaphylactic reaction [Unknown]
  - Generalised erythema [Recovered/Resolved]
  - Pruritus [Recovered/Resolved]
